FAERS Safety Report 6434458-3 (Version None)
Quarter: 2009Q4

REPORT INFORMATION
  Report Type: 
  Country: None (occurrence: None)
  Receive Date: 20091110
  Receipt Date: 20091029
  Transmission Date: 20100525
  Serious: Yes (Death)
  Sender: FDA-Public Use
  Company Number: BR-PFIZER INC-2009262633

PATIENT
  Age: 64 Year
  Sex: Female

DRUGS (4)
  1. ALDACTONE [Suspect]
     Indication: OEDEMA PERIPHERAL
     Dosage: 100 MG, 1X/DAY OR 2X/DAY
     Route: 048
     Dates: start: 19940101
  2. FUROSEMIDE [Concomitant]
     Indication: RENAL DISORDER
     Dosage: UNK
     Dates: start: 19990101
  3. FUROSEMIDE [Concomitant]
  4. ALUMINUM HYDROXIDE/CALCIUM CARBONATE/MAGNESIUM HYDROXIDE [Concomitant]
     Indication: FLATULENCE
     Dosage: UNK
     Dates: start: 20050101

REACTIONS (7)
  - CONDITION AGGRAVATED [None]
  - ERYSIPELAS [None]
  - HEPATIC CIRRHOSIS [None]
  - MUSCLE SPASMS [None]
  - OEDEMA PERIPHERAL [None]
  - OESOPHAGEAL VARICES HAEMORRHAGE [None]
  - SOMNOLENCE [None]
